FAERS Safety Report 13450341 (Version 3)
Quarter: 2017Q3

REPORT INFORMATION
  Report Type: Report from Study
  Country: None (occurrence: US)
  Receive Date: 20170417
  Receipt Date: 20170710
  Transmission Date: 20171127
  Serious: Yes (Hospitalization, Other)
  Sender: FDA-Public Use
  Company Number: US-ABBVIE-17K-163-1942979-00

PATIENT
  Age: 73 Year
  Sex: Male
  Weight: 84.44 kg

DRUGS (2)
  1. HUMIRA [Suspect]
     Active Substance: ADALIMUMAB
     Indication: PSORIASIS
     Route: 058
     Dates: start: 2016, end: 201703
  2. HUMIRA [Suspect]
     Active Substance: ADALIMUMAB
     Route: 058
     Dates: start: 20170704

REACTIONS (14)
  - Atrial fibrillation [Recovered/Resolved]
  - Hypokalaemia [Recovering/Resolving]
  - Post procedural swelling [Unknown]
  - Neuropathy peripheral [Recovered/Resolved]
  - Weight decreased [Not Recovered/Not Resolved]
  - Hyponatraemia [Recovering/Resolving]
  - Procedural pain [Unknown]
  - Pain in extremity [Unknown]
  - Heart rate abnormal [Recovered/Resolved with Sequelae]
  - Iron deficiency [Recovering/Resolving]
  - Psoriasis [Unknown]
  - Vascular stent thrombosis [Unknown]
  - Anaemia [Not Recovered/Not Resolved]
  - Back pain [Unknown]

NARRATIVE: CASE EVENT DATE: 201612
